FAERS Safety Report 6900462-1 (Version None)
Quarter: 2010Q3

REPORT INFORMATION
  Report Type: 
  Country: None (occurrence: None)
  Receive Date: 20100730
  Receipt Date: 20100721
  Transmission Date: 20110219
  Serious: Yes (Hospitalization, Other)
  Sender: FDA-Public Use
  Company Number: 8035938

PATIENT
  Sex: Female
  Weight: 86 kg

DRUGS (16)
  1. CERTOLIZUMAB PEGOL (CERTOLIZUMAB PEGOL) [Suspect]
     Indication: RHEUMATOID ARTHRITIS
     Dosage: 200 MG 1X/2 WEEKS SUBCUTANEOUS, 200 MG 1X/2 WEEKS SUBCUTANEOUS
     Route: 058
     Dates: start: 20050825, end: 20060810
  2. CERTOLIZUMAB PEGOL (CERTOLIZUMAB PEGOL) [Suspect]
     Indication: RHEUMATOID ARTHRITIS
     Dosage: 200 MG 1X/2 WEEKS SUBCUTANEOUS, 200 MG 1X/2 WEEKS SUBCUTANEOUS
     Route: 058
     Dates: end: 20080723
  3. FOLIC ACID [Concomitant]
  4. PREDNISONE [Concomitant]
  5. ACETAMINOPHEN [Concomitant]
  6. DICLOFENAC SODIUM [Concomitant]
  7. METHOTREXATE [Concomitant]
  8. AMIODARONE HCL [Concomitant]
  9. ASPIRIN CHILDREN [Concomitant]
  10. TORSEMIDE [Concomitant]
  11. AMLODIPINE [Concomitant]
  12. ENALAPRIL [Concomitant]
  13. CLONAZEPAM [Concomitant]
  14. ISOSORBIDE MONONITRATE [Concomitant]
  15. SIMVASTATINA MEPHA [Concomitant]
  16. ESOMEPRAZOLE MAGNESIUM [Concomitant]

REACTIONS (17)
  - ANGINA PECTORIS [None]
  - ARTHRITIS [None]
  - ATELECTASIS [None]
  - ATRIAL FIBRILLATION [None]
  - CHEST PAIN [None]
  - DRUG INEFFECTIVE [None]
  - DYSLIPIDAEMIA [None]
  - HYPERTENSION [None]
  - HYPOTHYROIDISM [None]
  - INTERVERTEBRAL DISC DISORDER [None]
  - JOINT DISLOCATION [None]
  - LEFT VENTRICULAR HYPERTROPHY [None]
  - OSTEONECROSIS [None]
  - OVERWEIGHT [None]
  - PNEUMONIA [None]
  - SPINAL OSTEOARTHRITIS [None]
  - TINNITUS [None]
